FAERS Safety Report 10160046 (Version 1)
Quarter: 2014Q2

REPORT INFORMATION
  Report Type: Spontaneous
  Country: US (occurrence: US)
  Receive Date: 20140508
  Receipt Date: 20140508
  Transmission Date: 20141212
  Serious: No
  Sender: FDA-Public Use
  Company Number: US-GLAXOSMITHKLINE-A1059128A

PATIENT
  Age: 66 Year
  Sex: Female
  Weight: 63 kg

DRUGS (13)
  1. TYKERB [Suspect]
     Indication: BREAST CANCER FEMALE
     Dosage: 1250MG PER DAY
     Route: 048
     Dates: start: 20131224
  2. HERCEPTIN [Concomitant]
  3. TAMOXIFEN [Concomitant]
  4. AMBIEN [Concomitant]
  5. BENADRYL [Concomitant]
  6. BYSTOLIC [Concomitant]
  7. CALCIUM [Concomitant]
  8. VITAMIN D [Concomitant]
  9. IBUPROFEN [Concomitant]
  10. NEXIUM [Concomitant]
  11. REMERON [Concomitant]
  12. SYNTHROID [Concomitant]
  13. XGEVA [Concomitant]

REACTIONS (2)
  - Diarrhoea [Not Recovered/Not Resolved]
  - Nausea [Not Recovered/Not Resolved]
